FAERS Safety Report 5309908-6 (Version None)
Quarter: 2007Q2

REPORT INFORMATION
  Report Type: 
  Country: None (occurrence: None)
  Receive Date: 20070427
  Receipt Date: 20070419
  Transmission Date: 20071010
  Serious: Yes (Death, Other)
  Sender: FDA-Public Use
  Company Number: US-ELI_LILLY_AND_COMPANY-US200704004344

PATIENT
  Age: 72 Year
  Sex: Male

DRUGS (5)
  1. ALIMTA [Suspect]
     Indication: NON-SMALL CELL LUNG CANCER
     Dosage: 500 MG/M2, UNK
     Route: 042
  2. VITAMIN B-12 [Concomitant]
  3. FOLIC ACID [Concomitant]
  4. ZOFRAN [Concomitant]
  5. NEULASTA [Concomitant]

REACTIONS (2)
  - DEATH [None]
  - NEUTROPENIA [None]
